FAERS Safety Report 14328480 (Version 4)
Quarter: 2018Q1

REPORT INFORMATION
  Report Type: Spontaneous
  Country: BR (occurrence: BR)
  Receive Date: 20171227
  Receipt Date: 20180312
  Transmission Date: 20180509
  Serious: Yes (Other)
  Sender: FDA-Public Use
  Company Number: BR-GLAXOSMITHKLINE-BR2017GSK162592

PATIENT
  Sex: Female
  Weight: 82 kg

DRUGS (7)
  1. BENLYSTA [Suspect]
     Active Substance: BELIMUMAB
     Dosage: 800 MG, UNK
     Dates: start: 20171107
  2. CYCLOPHOSPHAMIDE. [Suspect]
     Active Substance: CYCLOPHOSPHAMIDE
     Indication: KIDNEY INFECTION
     Dosage: 500 ML, UNK
  3. ENALAPRIL [Concomitant]
     Active Substance: ENALAPRIL
     Indication: BLOOD PRESSURE MEASUREMENT
     Dosage: 20 MG, UNK
  4. BENLYSTA [Suspect]
     Active Substance: BELIMUMAB
     Indication: SYSTEMIC LUPUS ERYTHEMATOSUS
     Dosage: 820 MG, UNK
     Dates: start: 20171010
  5. AZATHIOPRINE. [Concomitant]
     Active Substance: AZATHIOPRINE
     Indication: PRODUCT USED FOR UNKNOWN INDICATION
     Dosage: 150 MG, UNK
  6. ATENOLOL. [Concomitant]
     Active Substance: ATENOLOL
     Indication: BLOOD PRESSURE MEASUREMENT
     Dosage: 50 MG, UNK
  7. HYDROCHLOROTHIAZIDE + LOSARTAN [Concomitant]
     Active Substance: HYDROCHLOROTHIAZIDE\LOSARTAN
     Indication: BLOOD PRESSURE MEASUREMENT
     Dosage: 25 MG, UNK

REACTIONS (17)
  - Fatigue [Unknown]
  - Renal disorder [Unknown]
  - Nail disorder [Unknown]
  - Nephropathy [Unknown]
  - Gait disturbance [Unknown]
  - Drug dose omission [Unknown]
  - Hair texture abnormal [Unknown]
  - Inappropriate schedule of drug administration [Unknown]
  - Kidney infection [Unknown]
  - Arthralgia [Unknown]
  - Systemic lupus erythematosus [Unknown]
  - Dry skin [Unknown]
  - Therapeutic response unexpected [Recovered/Resolved]
  - Proteinuria [Unknown]
  - Pain [Unknown]
  - Malaise [Unknown]
  - Underdose [Recovered/Resolved]
